FAERS Safety Report 23703639 (Version 1)
Quarter: 2024Q2

REPORT INFORMATION
  Report Type: Spontaneous
  Country: US (occurrence: US)
  Receive Date: 20240403
  Receipt Date: 20240403
  Transmission Date: 20240716
  Serious: No
  Sender: FDA-Public Use
  Company Number: US-INSUD PHARMA-2403US02595

PATIENT

DRUGS (4)
  1. PROGESTERONE [Suspect]
     Active Substance: PROGESTERONE
     Indication: Hormone replacement therapy
     Dosage: 3 CAPSULES NIGHTLY
     Route: 048
     Dates: start: 20240311
  2. ESTROGENS [Concomitant]
     Active Substance: ESTROGENS
     Dosage: PATCH
     Route: 062
  3. ESTROGENS [Concomitant]
     Active Substance: ESTROGENS
     Dosage: VAGINAL TABLETS
     Route: 067
  4. TESTOSTERONE [Concomitant]
     Active Substance: TESTOSTERONE
     Dosage: CREAM
     Route: 061

REACTIONS (4)
  - Poor quality sleep [Not Recovered/Not Resolved]
  - Product use in unapproved indication [Unknown]
  - Poor quality product administered [Unknown]
  - Product odour abnormal [Unknown]

NARRATIVE: CASE EVENT DATE: 20240301
